FAERS Safety Report 9894023 (Version 1)
Quarter: 2014Q1

REPORT INFORMATION
  Report Type: Spontaneous
  Country: US (occurrence: US)
  Receive Date: 20140213
  Receipt Date: 20140213
  Transmission Date: 20141002
  Serious: No
  Sender: FDA-Public Use
  Company Number: US-PFIZER INC-2014041414

PATIENT
  Age: 69 Year
  Sex: Female
  Weight: 74.83 kg

DRUGS (2)
  1. LIPITOR [Suspect]
     Dosage: 10 MG, 1X/DAY
     Dates: start: 2006
  2. LIPITOR [Suspect]
     Dosage: 10 MG, 1X/DAY

REACTIONS (1)
  - Back pain [Unknown]
